FAERS Safety Report 4798143-6 (Version None)
Quarter: 2005Q4

REPORT INFORMATION
  Report Type: 
  Country: None (occurrence: None)
  Receive Date: 20051006
  Receipt Date: 20051006
  Transmission Date: 20060501
  Serious: Yes (Life-Threatening, Hospitalization)
  Sender: FDA-Public Use
  Company Number: None

PATIENT
  Age: 58 Year
  Sex: Male

DRUGS (4)
  1. WARFARIN [Suspect]
     Indication: CARDIAC ASSISTANCE DEVICE USER
     Dosage: 3MG PO QHS
     Route: 048
     Dates: end: 20040622
  2. WARFARIN [Suspect]
     Indication: THROMBOSIS
     Dosage: 3MG PO QHS
     Route: 048
     Dates: end: 20040622
  3. OXYCODONE [Concomitant]
  4. IBUPROFEN [Concomitant]

REACTIONS (3)
  - HAEMATEMESIS [None]
  - INTERNATIONAL NORMALISED RATIO INCREASED [None]
  - TREATMENT NONCOMPLIANCE [None]
